FAERS Safety Report 11802725 (Version 1)
Quarter: 2015Q4

REPORT INFORMATION
  Report Type: Spontaneous
  Country: US (occurrence: US)
  Receive Date: 20151204
  Receipt Date: 20151204
  Transmission Date: 20160305
  Serious: No
  Sender: FDA-Public Use
  Company Number: US-BEH-200814023

PATIENT
  Age: 15 Year
  Sex: Male

DRUGS (4)
  1. COMPLEMENT C1 ESTERASE INHIBITOR [Suspect]
     Active Substance: CONESTAT ALFA
     Indication: HEREDITARY ANGIOEDEMA
     Route: 042
     Dates: start: 20080522, end: 2008
  2. COMPLEMENT C1 ESTERASE INHIBITOR [Suspect]
     Active Substance: CONESTAT ALFA
     Route: 042
     Dates: start: 20080906, end: 20080906
  3. COMPLEMENT C1 ESTERASE INHIBITOR [Suspect]
     Active Substance: CONESTAT ALFA
     Route: 042
     Dates: start: 20080908, end: 20080908
  4. COMPLEMENT C1 ESTERASE INHIBITOR [Concomitant]
     Indication: HEREDITARY ANGIOEDEMA

REACTIONS (6)
  - Dizziness [Recovered/Resolved]
  - Fatigue [Recovered/Resolved]
  - Nausea [Not Recovered/Not Resolved]
  - Asthenia [Recovered/Resolved]
  - Activities of daily living impaired [None]
  - Treatment failure [None]

NARRATIVE: CASE EVENT DATE: 20080522
